FAERS Safety Report 5459806-2 (Version None)
Quarter: 2007Q3

REPORT INFORMATION
  Report Type: 
  Country: None (occurrence: None)
  Receive Date: 20070919
  Receipt Date: 20070918
  Transmission Date: 20080115
  Serious: Yes (Death, Hospitalization)
  Sender: FDA-Public Use
  Company Number: US-BRISTOL-MYERS SQUIBB COMPANY-13821293

PATIENT
  Age: 79 Year
  Sex: Male
  Weight: 73 kg

DRUGS (8)
  1. CETUXIMAB [Suspect]
     Indication: NON-SMALL CELL LUNG CANCER
     Route: 042
     Dates: start: 20070613, end: 20070613
  2. TAXOTERE [Suspect]
     Indication: NON-SMALL CELL LUNG CANCER
     Route: 042
     Dates: start: 20070613, end: 20070613
  3. GEMZAR [Suspect]
     Indication: NON-SMALL CELL LUNG CANCER
     Route: 042
     Dates: start: 20070613, end: 20070613
  4. TOPROL-XL [Concomitant]
     Indication: HYPERTENSION
     Dates: start: 20050101
  5. DIGOXIN [Concomitant]
     Indication: ATRIAL FIBRILLATION
     Dates: start: 19970901
  6. ZOCOR [Concomitant]
     Indication: BLOOD CHOLESTEROL INCREASED
     Dates: start: 20010101
  7. CARDIZEM [Concomitant]
     Indication: TACHYCARDIA
     Route: 042
     Dates: start: 20070615
  8. AVELOX [Concomitant]
     Indication: INFECTION
     Route: 042
     Dates: start: 20070615

REACTIONS (5)
  - CLOSTRIDIUM DIFFICILE COLITIS [None]
  - DIARRHOEA [None]
  - HYPOTENSION [None]
  - SEPSIS [None]
  - SINUS TACHYCARDIA [None]
